FAERS Safety Report 4923321-2 (Version None)
Quarter: 2006Q1

REPORT INFORMATION
  Report Type: 
  Country: None (occurrence: None)
  Receive Date: 20060227
  Receipt Date: 20060217
  Transmission Date: 20060701
  Serious: Yes (Hospitalization)
  Sender: FDA-Public Use
  Company Number: DK-JNJFOC-20060204426

PATIENT
  Age: 49 Year
  Sex: Male
  Weight: 75 kg

DRUGS (5)
  1. REMICADE [Suspect]
     Route: 042
  2. REMICADE [Suspect]
     Route: 042
  3. REMICADE [Suspect]
     Indication: CROHN'S DISEASE
     Route: 042
  4. IMUREL [Concomitant]
     Indication: CROHN'S DISEASE
     Route: 048
  5. PREDNISOLONE [Concomitant]

REACTIONS (1)
  - PULMONARY TUBERCULOSIS [None]
